FAERS Safety Report 6260711-2 (Version None)
Quarter: 2009Q3

REPORT INFORMATION
  Report Type: 
  Country: None (occurrence: None)
  Receive Date: 20090708
  Receipt Date: 20090623
  Transmission Date: 20100115
  Serious: Yes (Other)
  Sender: FDA-Public Use
  Company Number: GR-ELI_LILLY_AND_COMPANY-GR200907001551

PATIENT
  Age: 55 Year
  Sex: Female

DRUGS (2)
  1. RALOXIFENE HYDROCHLORIDE [Suspect]
     Indication: OSTEOPOROSIS
     Dosage: 60 MG, DAILY (1/D)
     Route: 048
     Dates: start: 20090301, end: 20090601
  2. IDEOS                              /00944201/ [Concomitant]

REACTIONS (2)
  - BREAST ENLARGEMENT [None]
  - HYPERHIDROSIS [None]
